FAERS Safety Report 24038919 (Version 1)
Quarter: 2024Q3

REPORT INFORMATION
  Report Type: Spontaneous
  Country: NL (occurrence: NL)
  Receive Date: 20240702
  Receipt Date: 20240702
  Transmission Date: 20241017
  Serious: Yes (Hospitalization, Other)
  Sender: CELLTRION
  Company Number: NL-CELLTRION INC.-2024NL015643

PATIENT

DRUGS (3)
  1. BEVACIZUMAB [Suspect]
     Active Substance: BEVACIZUMAB
     Indication: Colorectal cancer
     Dosage: RECENT DOSE ON 21/AUG/2023
     Route: 065
     Dates: start: 20230811
  2. OXALIPLATIN [Suspect]
     Active Substance: OXALIPLATIN
     Indication: Colorectal cancer
     Dosage: RECENT DOSE ON 13/OCT/2023
     Route: 065
     Dates: start: 20230811
  3. CAPECITABINE [Suspect]
     Active Substance: CAPECITABINE
     Indication: Colorectal cancer
     Dosage: RECENT DOSE ON 13/OCT/2023
     Route: 048
     Dates: start: 20230811

REACTIONS (1)
  - Gastrointestinal anastomotic leak [Recovered/Resolved]

NARRATIVE: CASE EVENT DATE: 20231126
